FAERS Safety Report 23166931 (Version 1)
Quarter: 2023Q4

REPORT INFORMATION
  Report Type: Spontaneous
  Country: FR (occurrence: FR)
  Receive Date: 20231109
  Receipt Date: 20231109
  Transmission Date: 20240109
  Serious: Yes (Hospitalization)
  Sender: FDA-Public Use
  Company Number: FR-SUN PHARMACEUTICAL INDUSTRIES LTD-2023RR-417301

PATIENT
  Age: 5 Year
  Sex: Male
  Weight: 16 kg

DRUGS (1)
  1. IBUPROFEN [Suspect]
     Active Substance: IBUPROFEN
     Indication: Ear infection
     Dosage: 4 DOSAGE FORM, IN TOTAL
     Route: 048
     Dates: start: 202302, end: 202302

REACTIONS (1)
  - Mastoiditis [Recovered/Resolved]

NARRATIVE: CASE EVENT DATE: 20230301
